FAERS Safety Report 5680044-2 (Version None)
Quarter: 2008Q1

REPORT INFORMATION
  Report Type: 
  Country: None (occurrence: None)
  Receive Date: 20080325
  Receipt Date: 20080325
  Transmission Date: 20080703
  Serious: No
  Sender: FDA-Public Use
  Company Number: None

PATIENT
  Sex: Female
  Weight: 93.441 kg

DRUGS (12)
  1. HUMIRA [Suspect]
     Indication: RHEUMATOID ARTHRITIS
     Dosage: 40 MG ONCE EVERY 2 WEEKS SQ
     Route: 058
     Dates: start: 20060811
  2. ULTRAM [Concomitant]
  3. VICODIN [Concomitant]
  4. METHOTREXATE [Concomitant]
  5. PROTONIX [Concomitant]
  6. BACLOFEN [Concomitant]
  7. FOLIC ACID [Concomitant]
  8. ALBUTEROL [Concomitant]
  9. TOPAMAX [Concomitant]
  10. TRAZODONE HCL [Concomitant]
  11. FLONASE [Concomitant]
  12. MULTI-VITAMIN [Concomitant]

REACTIONS (2)
  - BREAST DISORDER [None]
  - OVARIAN CYST [None]
